FAERS Safety Report 19845560 (Version 1)
Quarter: 2021Q3

REPORT INFORMATION
  Report Type: Spontaneous
  Country: GB (occurrence: GB)
  Receive Date: 20210916
  Receipt Date: 20210916
  Transmission Date: 20211014
  Serious: Yes (Hospitalization)
  Sender: FDA-Public Use
  Company Number: GB-ALLERGAN-2132109US

PATIENT
  Sex: Female

DRUGS (2)
  1. JUVEDERM VOLIFT [Suspect]
     Active Substance: HYALURONIC ACID\LIDOCAINE
     Indication: LIP COSMETIC PROCEDURE
     Dosage: 0.4 ML
     Dates: start: 20210722, end: 20210722
  2. BOTOX [Suspect]
     Active Substance: ONABOTULINUMTOXINA
     Indication: SKIN WRINKLING
     Dosage: UNK, SINGLE
     Dates: start: 20210722, end: 20210722

REACTIONS (5)
  - Injection site nodule [Unknown]
  - Injection site infection [Unknown]
  - Injection site swelling [Unknown]
  - Injection site pain [Unknown]
  - Injection site discharge [Unknown]
